FAERS Safety Report 5029230-5 (Version None)
Quarter: 2006Q2

REPORT INFORMATION
  Report Type: 
  Country: None (occurrence: None)
  Receive Date: 20060616
  Receipt Date: 20060616
  Transmission Date: 20061013
  Serious: Yes (Hospitalization)
  Sender: FDA-Public Use
  Company Number: None

PATIENT
  Age: 74 Year
  Sex: Male
  Weight: 83.1 kg

DRUGS (3)
  1. DIGOXIN [Suspect]
     Indication: ATRIAL FIBRILLATION
     Dosage: 0.125GM   QD   PO   DURATION: SEVERAL YEARS
     Route: 048
  2. METOPROLOL TARTRATE [Suspect]
     Indication: CORONARY ARTERY DISEASE
     Dosage: 50MG  BID  PO   DURATION: SEVERAL YEARS
     Route: 048
  3. METOPROLOL TARTRATE [Suspect]
     Indication: HYPERTENSION
     Dosage: 50MG  BID  PO   DURATION: SEVERAL YEARS
     Route: 048

REACTIONS (14)
  - ATRIAL FIBRILLATION [None]
  - ATRIAL FLUTTER [None]
  - ATRIOVENTRICULAR BLOCK [None]
  - BRADYCARDIA [None]
  - CARDIAC VENTRICULAR DISORDER [None]
  - CONDITION AGGRAVATED [None]
  - DILATATION VENTRICULAR [None]
  - DIZZINESS [None]
  - EJECTION FRACTION DECREASED [None]
  - HYPOTENSION [None]
  - MITRAL VALVE INCOMPETENCE [None]
  - TRICUSPID VALVE INCOMPETENCE [None]
  - VENTRICULAR DYSFUNCTION [None]
  - VENTRICULAR HYPOKINESIA [None]
